FAERS Safety Report 6206700-5 (Version None)
Quarter: 2009Q2

REPORT INFORMATION
  Report Type: 
  Country: None (occurrence: None)
  Receive Date: 20090528
  Receipt Date: 20090520
  Transmission Date: 20091009
  Serious: Yes (Other)
  Sender: FDA-Public Use
  Company Number: US-ELI_LILLY_AND_COMPANY-US200905004577

PATIENT
  Sex: Female

DRUGS (2)
  1. FORTEO [Suspect]
     Dosage: UNK, UNK
     Dates: start: 20060101, end: 20060101
  2. FORTEO [Suspect]

REACTIONS (4)
  - ARTHRITIS [None]
  - BUNION [None]
  - SLEEP DISORDER [None]
  - SPINAL FRACTURE [None]
